FAERS Safety Report 19058862 (Version 1)
Quarter: 2021Q1

REPORT INFORMATION
  Report Type: Spontaneous
  Country: US (occurrence: US)
  Receive Date: 20210325
  Receipt Date: 20210325
  Transmission Date: 20210420
  Serious: No
  Sender: FDA-Public Use
  Company Number: US-BAYER-2021-108811

PATIENT
  Age: 64 Year
  Sex: Male

DRUGS (1)
  1. BETASERON [Suspect]
     Active Substance: INTERFERON BETA-1B
     Dosage: 0.3 MG
     Dates: start: 20010101, end: 20210322

REACTIONS (1)
  - Injection site scar [None]

NARRATIVE: CASE EVENT DATE: 20210319
